FAERS Safety Report 5332492-8 (Version None)
Quarter: 2007Q2

REPORT INFORMATION
  Report Type: 
  Country: None (occurrence: None)
  Receive Date: 20070306
  Receipt Date: 20060825
  Transmission Date: 20071010
  Serious: Yes (Hospitalization)
  Sender: FDA-Public Use
  Company Number: A03200605368

PATIENT
  Age: 75 Year
  Sex: Female

DRUGS (3)
  1. PLAVIX [Suspect]
     Indication: STENT PLACEMENT
     Dosage: 600 MG ONCE - ORAL
     Route: 048
     Dates: start: 20060801, end: 20060801
  2. PLAVIX [Suspect]
     Indication: STENT PLACEMENT
     Dosage: ORAL
     Route: 048
  3. TAXUS - TAMOXIFEN CITRATE - UNKNOWN - UNIT DOSE : UNKNOWN [Suspect]
     Indication: MYOCARDIAL INFARCTION
     Dates: start: 20060801

REACTIONS (4)
  - CARDIOGENIC SHOCK [None]
  - CHEST PAIN [None]
  - PRESCRIBED OVERDOSE [None]
  - THROMBOSIS IN DEVICE [None]
